FAERS Safety Report 23084001 (Version 2)
Quarter: 2024Q3

REPORT INFORMATION
  Report Type: Spontaneous
  Country: US (occurrence: US)
  Receive Date: 20231019
  Receipt Date: 20240919
  Transmission Date: 20241016
  Serious: No
  Sender: PFIZER
  Company Number: US-PFIZER INC-PV202300172461

PATIENT
  Age: 72 Year
  Sex: Male

DRUGS (1)
  1. INLYTA [Suspect]
     Active Substance: AXITINIB
     Dosage: 5 MG

REACTIONS (5)
  - Fatigue [Not Recovered/Not Resolved]
  - Blood pressure increased [Unknown]
  - Oral discomfort [Unknown]
  - Dysphonia [Unknown]
  - Hypoacusis [Unknown]
